FAERS Safety Report 8230055-8 (Version None)
Quarter: 2012Q1

REPORT INFORMATION
  Report Type: 
  Country: None (occurrence: None)
  Receive Date: 20120323
  Receipt Date: 20120319
  Transmission Date: 20120608
  Serious: No
  Sender: FDA-Public Use
  Company Number: US-PFIZER INC-2012072428

PATIENT
  Age: 84 Year
  Sex: Male

DRUGS (2)
  1. LIPITOR [Suspect]
     Indication: HYPERCHOLESTEROLAEMIA
     Dosage: 10 MG, UNK
     Dates: start: 20120201
  2. SILODOSIN [Suspect]
     Indication: POLLAKIURIA
     Dosage: 8 MG, UNK
     Dates: start: 20120201

REACTIONS (5)
  - NASAL CONGESTION [None]
  - HYPOTENSION [None]
  - RHINORRHOEA [None]
  - MUSCLE SPASMS [None]
  - DROOLING [None]
